FAERS Safety Report 15756028 (Version 1)
Quarter: 2018Q4

REPORT INFORMATION
  Report Type: Report from Study
  Country: FR (occurrence: FR)
  Receive Date: 20181224
  Receipt Date: 20181224
  Transmission Date: 20190205
  Serious: Yes (Hospitalization)
  Sender: FDA-Public Use
  Company Number: PHHY2018FR192777

PATIENT
  Sex: Male
  Weight: 101 kg

DRUGS (1)
  1. VOTRIENT [Suspect]
     Active Substance: PAZOPANIB HYDROCHLORIDE
     Indication: RENAL CANCER METASTATIC
     Dosage: 800 MG, DAILY
     Route: 048
     Dates: start: 20180618

REACTIONS (5)
  - Vomiting [Recovering/Resolving]
  - Anaemia [Recovering/Resolving]
  - Atrial fibrillation [Recovering/Resolving]
  - Dehydration [Recovering/Resolving]
  - General physical health deterioration [Recovering/Resolving]

NARRATIVE: CASE EVENT DATE: 20181127
